FAERS Safety Report 15773028 (Version 3)
Quarter: 2019Q1

REPORT INFORMATION
  Report Type: Spontaneous
  Country: US (occurrence: JP)
  Receive Date: 20181228
  Receipt Date: 20190116
  Transmission Date: 20190417
  Serious: Yes (Other)
  Sender: FDA-Public Use
  Company Number: US-SUNOVION-2018SUN005017

PATIENT
  Age: 74 Year
  Sex: Male

DRUGS (1)
  1. INDACATEROL AND GLYCOPYRROLATE [Suspect]
     Active Substance: GLYCOPYRROLATE\INDACATEROL MALEATE
     Indication: CHRONIC OBSTRUCTIVE PULMONARY DISEASE
     Dosage: 1DF (INDACATEROL 110 UG, GLYCOPYRRONIUM BROMIDE 50 UG), UNK
     Route: 055

REACTIONS (2)
  - Concomitant disease aggravated [Unknown]
  - Lung neoplasm malignant [Unknown]
